FAERS Safety Report 6984708-X (Version None)
Quarter: 2010Q3

REPORT INFORMATION
  Report Type: 
  Country: None (occurrence: None)
  Receive Date: 20100915
  Receipt Date: 20100910
  Transmission Date: 20110219
  Serious: Yes (Other)
  Sender: FDA-Public Use
  Company Number: FR-BAYER-200923147GPV

PATIENT
  Age: 76 Year
  Sex: Male
  Weight: 75 kg

DRUGS (6)
  1. SORAFENIB [Suspect]
     Indication: HEPATIC NEOPLASM MALIGNANT
     Dosage: TOTAL DAILY DOSE: 800 MG
     Route: 048
     Dates: start: 20090324, end: 20090519
  2. NITRENDIPINE [Concomitant]
     Indication: HYPERTENSION
     Dosage: TOTAL DAILY DOSE: 80 MG
     Route: 048
     Dates: start: 19990101
  3. FENOFIBRATE [Concomitant]
     Indication: HYPERTENSION
     Dosage: TOTAL DAILY DOSE: 640 MG
     Route: 048
     Dates: start: 19990101
  4. ALOPLASTINE [Concomitant]
     Indication: PROCTALGIA
     Dosage: 1 APPLICATION AS NEEDED
     Route: 061
     Dates: start: 20090407
  5. OMEPRAZOLE [Concomitant]
     Indication: GASTROOESOPHAGEAL REFLUX DISEASE
     Route: 048
     Dates: start: 20090407
  6. LOPERAMIDE [Concomitant]
     Indication: DIARRHOEA
     Dosage: TOTAL DAILY DOSE: 60 MG
     Route: 065
     Dates: start: 20090421

REACTIONS (2)
  - EYE OEDEMA [None]
  - HERPES ZOSTER OPHTHALMIC [None]
